FAERS Safety Report 10310716 (Version 2)
Quarter: 2014Q3

REPORT INFORMATION
  Report Type: Spontaneous
  Country: NO (occurrence: NO)
  Receive Date: 20140717
  Receipt Date: 20140717
  Transmission Date: 20150326
  Serious: Yes (Hospitalization, Other)
  Sender: FDA-Public Use
  Company Number: NO-ELI_LILLY_AND_COMPANY-NO201406000519

PATIENT
  Sex: Male

DRUGS (5)
  1. TIMAXEL [Concomitant]
     Indication: ABNORMAL BEHAVIOUR
     Dosage: 25 MG, UNK
     Route: 065
  2. METADON                            /00068901/ [Concomitant]
     Indication: PRODUCT USED FOR UNKNOWN INDICATION
     Dosage: 60 MG, UNK
     Route: 065
  3. ZYPADHERA [Suspect]
     Active Substance: OLANZAPINE PAMOATE
     Indication: PSYCHOTIC DISORDER
     Dosage: 405 MG, 2/M
     Route: 030
     Dates: start: 20130124
  4. APODORM [Concomitant]
     Indication: PRODUCT USED FOR UNKNOWN INDICATION
     Dosage: 10 MG, UNK
     Route: 065
  5. SOBRIL [Concomitant]
     Active Substance: OXAZEPAM
     Indication: ABNORMAL BEHAVIOUR
     Dosage: 25 MG, UNK
     Route: 065

REACTIONS (10)
  - Irritability [Recovered/Resolved]
  - Prescribed overdose [Recovered/Resolved]
  - Lethargy [Recovered/Resolved]
  - Consciousness fluctuating [Recovered/Resolved]
  - Somnolence [Recovered/Resolved]
  - Pyrexia [Recovered/Resolved]
  - Blood creatine phosphokinase increased [Recovering/Resolving]
  - Tachycardia [Recovered/Resolved]
  - C-reactive protein increased [Recovering/Resolving]
  - Unresponsive to stimuli [Recovered/Resolved]

NARRATIVE: CASE EVENT DATE: 20140528
